FAERS Safety Report 10458243 (Version 2)
Quarter: 2014Q4

REPORT INFORMATION
  Report Type: Report from Study
  Country: US (occurrence: US)
  Receive Date: 20140917
  Receipt Date: 20141029
  Transmission Date: 20150528
  Serious: Yes (Other)
  Sender: FDA-Public Use
  Company Number: US-AMGEN-USASP2014070737

PATIENT
  Age: 50 Year
  Sex: Female
  Weight: 62.59 kg

DRUGS (10)
  1. LIPITOR [Concomitant]
     Active Substance: ATORVASTATIN CALCIUM
     Dosage: 20 MG, QD
     Route: 048
  2. BENICAR [Concomitant]
     Active Substance: OLMESARTAN MEDOXOMIL
     Indication: HYPERTENSION
     Dosage: 40 MG, DAILY
     Route: 048
  3. SYMBICORT [Concomitant]
     Active Substance: BUDESONIDE\FORMOTEROL FUMARATE DIHYDRATE
     Dosage: UNK UNK, BID
  4. FOLIC ACID. [Concomitant]
     Active Substance: FOLIC ACID
     Dosage: 1 MG, DAILY
     Route: 048
  5. PLAQUENIL [Concomitant]
     Active Substance: HYDROXYCHLOROQUINE SULFATE
     Dosage: 200 MG, BID
     Route: 048
  6. ARAVA [Concomitant]
     Active Substance: LEFLUNOMIDE
     Dosage: 20 MG, BID
     Route: 048
  7. LUNESTA [Suspect]
     Active Substance: ESZOPICLONE
     Indication: PRODUCT USED FOR UNKNOWN INDICATION
     Dosage: 3 MG, QHS
     Route: 048
  8. VITAMIN D                          /00107901/ [Concomitant]
     Active Substance: ERGOCALCIFEROL
     Dosage: 1000 IU, DAILY
  9. ENBREL [Suspect]
     Active Substance: ETANERCEPT
     Indication: RHEUMATOID ARTHRITIS
     Dosage: UNK
     Route: 065
     Dates: start: 2003
  10. DETROL [Concomitant]
     Active Substance: TOLTERODINE TARTRATE
     Dosage: 4 MG, DAILY
     Route: 048

REACTIONS (34)
  - Lung disorder [Unknown]
  - Scar [Unknown]
  - Musculoskeletal pain [Unknown]
  - Arthropathy [Unknown]
  - Cataract [Unknown]
  - Rash [Recovered/Resolved]
  - Hyperlipidaemia [Unknown]
  - Hand deformity [Unknown]
  - Joint range of motion decreased [Unknown]
  - Dysphonia [Unknown]
  - Injection site pain [Not Recovered/Not Resolved]
  - Foot fracture [Unknown]
  - Upper limb fracture [Unknown]
  - Accident [Unknown]
  - Hypertension [Unknown]
  - Gastrooesophageal reflux disease [Unknown]
  - Pulmonary mass [Unknown]
  - Contusion [Unknown]
  - Injection site swelling [Not Recovered/Not Resolved]
  - Osteopenia [Unknown]
  - Vitamin D deficiency [Unknown]
  - Ankle deformity [Unknown]
  - Hyperkeratosis [Unknown]
  - Tooth abscess [Unknown]
  - Synovitis [Unknown]
  - Anxiety [Unknown]
  - Fall [Unknown]
  - Rheumatoid arthritis [Unknown]
  - Urinary incontinence [Unknown]
  - Fatigue [Unknown]
  - Insomnia [Unknown]
  - Bone deformity [Unknown]
  - Foot deformity [Unknown]
  - Injection site pruritus [Recovered/Resolved]

NARRATIVE: CASE EVENT DATE: 2003
